FAERS Safety Report 7016962-2 (Version None)
Quarter: 2010Q3

REPORT INFORMATION
  Report Type: 
  Country: None (occurrence: None)
  Receive Date: 20100927
  Receipt Date: 20100914
  Transmission Date: 20110219
  Serious: Yes (Other)
  Sender: FDA-Public Use
  Company Number: US-PFIZER INC-2010116989

PATIENT
  Sex: Male

DRUGS (1)
  1. LYRICA [Suspect]
     Indication: NEURALGIA
     Dosage: 50 MG, 3X/DAY
     Route: 048
     Dates: start: 20100910, end: 20100913

REACTIONS (5)
  - BALANCE DISORDER [None]
  - HALLUCINATION [None]
  - HYPERSOMNIA [None]
  - INSOMNIA [None]
  - PAIN [None]
